FAERS Safety Report 7911313-0 (Version None)
Quarter: 2011Q4

REPORT INFORMATION
  Report Type: 
  Country: None (occurrence: None)
  Receive Date: 20111109
  Receipt Date: 20111028
  Transmission Date: 20120403
  Serious: Yes (Other)
  Sender: FDA-Public Use
  Company Number: 1000022788

PATIENT
  Sex: Male

DRUGS (2)
  1. VIIBRYD [Suspect]
     Indication: DEPRESSION
     Dosage: 20 MG (20 MG), ORAL
     Route: 048
  2. VIIBRYD [Suspect]
     Indication: DEPRESSION
     Dosage: 10 MG (10 MG), ORAL
     Route: 048

REACTIONS (3)
  - RESPIRATORY DISORDER [None]
  - SWOLLEN TONGUE [None]
  - THROAT TIGHTNESS [None]
